FAERS Safety Report 12683048 (Version 1)
Quarter: 2016Q3

REPORT INFORMATION
  Report Type: Spontaneous
  Country: US (occurrence: None)
  Receive Date: 20160824
  Receipt Date: 20160824
  Transmission Date: 20161109
  Serious: No
  Sender: FDA-Public Use
  Company Number: None

PATIENT

DRUGS (2)
  1. ACETIC ACID 0.25% FOR IRRIGATION ACETIC ACID FOR IRRIGATION BAXTER HEALTHCARE CORPORATION [Suspect]
     Active Substance: ACETIC ACID
  2. STERILE WATER FOR IRRIGATION STERILE WATER FOR IRRIGATION BAXTER HEALTHCARE CORPORATION [Suspect]
     Active Substance: WATER
     Dosage: LIQUID, BOTTLE

REACTIONS (1)
  - Wrong drug administered [None]
